FAERS Safety Report 7358099-9 (Version None)
Quarter: 2011Q1

REPORT INFORMATION
  Report Type: 
  Country: None (occurrence: None)
  Receive Date: 20110307
  Receipt Date: 20100521
  Transmission Date: 20110831
  Serious: No
  Sender: FDA-Public Use
  Company Number: AEUSA201000188

PATIENT
  Age: 67 Year
  Sex: Female
  Weight: 69.8539 kg

DRUGS (4)
  1. FORADIL [Concomitant]
  2. PULMICORT [Concomitant]
  3. PROLASTIN [Concomitant]
  4. PROLASTIN-C [Suspect]
     Indication: ALPHA-1 ANTI-TRYPSIN DEFICIENCY
     Dosage: 120 MG/KG;QOW;IV
     Route: 042
     Dates: start: 20100519

REACTIONS (4)
  - CHILLS [None]
  - BACK PAIN [None]
  - PAIN IN EXTREMITY [None]
  - PYREXIA [None]
